FAERS Safety Report 9286145 (Version 1)
Quarter: 2013Q2

REPORT INFORMATION
  Report Type: Spontaneous
  Country: US (occurrence: None)
  Receive Date: 20130510
  Receipt Date: 20130510
  Transmission Date: 20140414
  Serious: Yes (Hospitalization)
  Sender: FDA-Public Use
  Company Number: None

PATIENT
  Age: 49 Year
  Sex: Female
  Weight: 78.79 kg

DRUGS (11)
  1. PACLITAXEL (TAXOL) [Suspect]
     Dates: end: 20130502
  2. CLARITIN [Concomitant]
  3. COMPAZINE [Concomitant]
  4. DECADRON [Concomitant]
  5. LISINOPRIL [Concomitant]
  6. MAGNESIUM [Concomitant]
  7. NEURONTIN [Concomitant]
  8. OXYCONTIN [Concomitant]
  9. ROXICODONE [Concomitant]
  10. TESSALON PERLES [Concomitant]
  11. XANAX [Concomitant]

REACTIONS (7)
  - Pneumonia [None]
  - Chills [None]
  - Pyrexia [None]
  - Hypokalaemia [None]
  - Blood magnesium decreased [None]
  - Bronchospasm [None]
  - Oxygen saturation decreased [None]
